FAERS Safety Report 25032751 (Version 1)
Quarter: 2025Q1

REPORT INFORMATION
  Report Type: Spontaneous
  Country: DE (occurrence: DE)
  Receive Date: 20250303
  Receipt Date: 20250303
  Transmission Date: 20250409
  Serious: Yes (Other)
  Sender: TEVA
  Company Number: DE-TEVA-VS-3304049

PATIENT
  Age: 79 Year
  Sex: Female

DRUGS (2)
  1. PRIMIDONE [Suspect]
     Active Substance: PRIMIDONE
     Indication: Epilepsy
     Route: 065
     Dates: start: 1967
  2. formerly Marcumar [Concomitant]
     Indication: Product used for unknown indication

REACTIONS (11)
  - Near death experience [Unknown]
  - Polyneuropathy [Unknown]
  - Panic reaction [Unknown]
  - Gait disturbance [Unknown]
  - Eye disorder [Unknown]
  - Aphonia [Unknown]
  - Thermal burn [Unknown]
  - Fall [Unknown]
  - Hypoaesthesia [Unknown]
  - Oedema [Unknown]
  - Parkinsonism [Unknown]

NARRATIVE: CASE EVENT DATE: 20160101
